FAERS Safety Report 13463765 (Version 1)
Quarter: 2017Q2

REPORT INFORMATION
  Report Type: Spontaneous
  Country: US (occurrence: US)
  Receive Date: 20170420
  Receipt Date: 20170420
  Transmission Date: 20170830
  Serious: Yes (Other)
  Sender: FDA-Public Use
  Company Number: US-ROCHE-645184

PATIENT
  Age: 22 Year
  Sex: Male
  Weight: 65.8 kg

DRUGS (7)
  1. BENZAC AC [Concomitant]
     Active Substance: BENZOYL PEROXIDE
     Indication: ACNE
     Route: 065
  2. LIQUIBID-D [Concomitant]
     Indication: RESPIRATORY TRACT INFECTION
     Route: 065
  3. KEFTAB [Concomitant]
     Active Substance: CEPHALEXIN HYDROCHLORIDE
     Indication: RESPIRATORY TRACT INFECTION
     Route: 065
  4. DIFFERIN GEL [Concomitant]
     Active Substance: ADAPALENE
     Indication: ACNE
     Route: 065
  5. ALBUTEROL. [Concomitant]
     Active Substance: ALBUTEROL
     Indication: ASTHMA
     Route: 065
  6. METHYLPREDNISOLONE. [Concomitant]
     Active Substance: METHYLPREDNISOLONE
     Indication: ASTHMA
     Route: 065
  7. ACCUTANE [Suspect]
     Active Substance: ISOTRETINOIN
     Indication: ACNE
     Route: 048
     Dates: start: 20000519, end: 20010426

REACTIONS (13)
  - Back pain [Unknown]
  - Myalgia [Recovering/Resolving]
  - Alanine aminotransferase increased [Unknown]
  - Inflammatory bowel disease [Unknown]
  - Proctitis ulcerative [Unknown]
  - Dry skin [Unknown]
  - Dry mouth [Recovered/Resolved]
  - Blood triglycerides increased [Recovered/Resolved]
  - Crohn^s disease [Unknown]
  - Aspartate aminotransferase increased [Unknown]
  - Lip dry [Unknown]
  - Dry eye [Unknown]
  - Epistaxis [Recovered/Resolved]

NARRATIVE: CASE EVENT DATE: 20000522
